FAERS Safety Report 19372482 (Version 1)
Quarter: 2021Q2

REPORT INFORMATION
  Report Type: Spontaneous
  Country: US (occurrence: US)
  Receive Date: 20210603
  Receipt Date: 20210603
  Transmission Date: 20210717
  Serious: Yes (Hospitalization)
  Sender: FDA-Public Use
  Company Number: None

PATIENT
  Age: 74 Year
  Sex: Female
  Weight: 87.5 kg

DRUGS (1)
  1. ACTEMRA [Suspect]
     Active Substance: TOCILIZUMAB
     Indication: COVID-19
     Dosage: ?          OTHER FREQUENCY:ONCE;?
     Route: 040
     Dates: start: 20210514, end: 20210514

REACTIONS (5)
  - Acute myocardial infarction [None]
  - Neutropenia [None]
  - Mental status changes [None]
  - Thrombocytopenia [None]
  - Off label use [None]

NARRATIVE: CASE EVENT DATE: 20210601
